FAERS Safety Report 19075371 (Version 1)
Quarter: 2021Q1

REPORT INFORMATION
  Report Type: Spontaneous
  Country: US (occurrence: US)
  Receive Date: 20210330
  Receipt Date: 20210330
  Transmission Date: 20210420
  Serious: No
  Sender: FDA-Public Use
  Company Number: US-ELI_LILLY_AND_COMPANY-US202103013912

PATIENT
  Age: 79 Year
  Sex: Male

DRUGS (2)
  1. BAMLANIVIMAB. [Suspect]
     Active Substance: BAMLANIVIMAB
     Indication: COVID-19
     Dosage: UNK UNK, UNKNOWN
     Route: 065
     Dates: start: 20210323, end: 20210323
  2. MELATONIN [Concomitant]
     Active Substance: MELATONIN

REACTIONS (4)
  - Oropharyngeal discomfort [Unknown]
  - Nasal congestion [Unknown]
  - Nasopharyngitis [Unknown]
  - Appetite disorder [Unknown]
